FAERS Safety Report 16050103 (Version 1)
Quarter: 2019Q1

REPORT INFORMATION
  Report Type: Spontaneous
  Country: AT (occurrence: AT)
  Receive Date: 20190308
  Receipt Date: 20190308
  Transmission Date: 20190418
  Serious: Yes (Death)
  Sender: FDA-Public Use
  Company Number: AT-ACCORD-110937

PATIENT
  Age: 45 Year
  Sex: Male

DRUGS (1)
  1. RAMIPRIL. [Suspect]
     Active Substance: RAMIPRIL
     Indication: PRODUCT USED FOR UNKNOWN INDICATION
     Dosage: SINCE SEVERAL MONTHS
     Dates: start: 2018

REACTIONS (1)
  - Pharyngeal oedema [Fatal]

NARRATIVE: CASE EVENT DATE: 20180829
